FAERS Safety Report 18124141 (Version 2)
Quarter: 2020Q3

REPORT INFORMATION
  Report Type: Other
  Country: IT (occurrence: IT)
  Receive Date: 20200807
  Receipt Date: 20200828
  Transmission Date: 20201103
  Serious: Yes (Other)
  Sender: FDA-Public Use
  Company Number: IT-EMD SERONO-E2B_90079160

PATIENT
  Age: 61 Year
  Sex: Female

DRUGS (1)
  1. CLADRIBINE. [Suspect]
     Active Substance: CLADRIBINE
     Indication: RELAPSING-REMITTING MULTIPLE SCLEROSIS
     Dosage: FIRST YEAR THERAPY.
     Route: 048
     Dates: start: 20191201, end: 20200101

REACTIONS (3)
  - Severe acute respiratory syndrome [Recovered/Resolved]
  - Lymphopenia [Unknown]
  - COVID-19 [Recovered/Resolved]

NARRATIVE: CASE EVENT DATE: 202002
